FAERS Safety Report 18118812 (Version 1)
Quarter: 2020Q3

REPORT INFORMATION
  Report Type: Spontaneous
  Country: GB (occurrence: GB)
  Receive Date: 20200806
  Receipt Date: 20200806
  Transmission Date: 20201103
  Serious: Yes (Other)
  Sender: FDA-Public Use
  Company Number: GB-TEVA-2020-GB-1809530

PATIENT
  Age: 29 Year
  Sex: Male
  Weight: 80 kg

DRUGS (2)
  1. RISPERIDONE. [Concomitant]
     Active Substance: RISPERIDONE
     Dosage: 1 DOSAGE FORM
     Dates: start: 20200501
  2. PALIPERIDONE. [Suspect]
     Active Substance: PALIPERIDONE
     Dosage: 100MG/ML
     Dates: start: 20200319

REACTIONS (1)
  - Injection site oedema [Recovering/Resolving]

NARRATIVE: CASE EVENT DATE: 20200319
